FAERS Safety Report 8831812 (Version 3)
Quarter: 2013Q4

REPORT INFORMATION
  Report Type: Spontaneous
  Country: US (occurrence: US)
  Receive Date: 20121008
  Receipt Date: 20131003
  Transmission Date: 20140711
  Serious: No
  Sender: FDA-Public Use
  Company Number: US-009507513-1209USA008292

PATIENT
  Sex: Female

DRUGS (4)
  1. MAXALT [Suspect]
     Indication: MIGRAINE
     Dosage: 10 MG, PRN
     Route: 048
     Dates: start: 20120120
  2. XANAX [Concomitant]
  3. PREMARIN [Concomitant]
  4. ADVIL [Concomitant]

REACTIONS (3)
  - Drug effect decreased [Unknown]
  - Hypoaesthesia [Unknown]
  - Salivary hypersecretion [Unknown]
